FAERS Safety Report 5986886-8 (Version None)
Quarter: 2008Q4

REPORT INFORMATION
  Report Type: 
  Country: None (occurrence: None)
  Receive Date: 20081209
  Receipt Date: 20081126
  Transmission Date: 20090506
  Serious: Yes (Hospitalization)
  Sender: FDA-Public Use
  Company Number: CA-ELI_LILLY_AND_COMPANY-CA200811006248

PATIENT
  Age: 83 Year
  Sex: Female

DRUGS (13)
  1. FORTEO [Suspect]
     Indication: OSTEOPOROSIS
     Dosage: 20 UG, DAILY (1/D)
     Route: 058
     Dates: start: 20080619
  2. ELTROXIN [Concomitant]
  3. HYDROMORPHONE HCL [Concomitant]
  4. PREDNISONE TAB [Concomitant]
  5. ASPIRIN [Concomitant]
  6. OMEPRAZOLE [Concomitant]
  7. DILTIAZEM [Concomitant]
  8. ZOPICLONE [Concomitant]
  9. VITAMIN E [Concomitant]
  10. B-50 [Concomitant]
  11. CALCIUM [Concomitant]
  12. MAGNESIUM SULFATE [Concomitant]
  13. VITAMIN D [Concomitant]

REACTIONS (5)
  - DIZZINESS [None]
  - FALL [None]
  - HEAD INJURY [None]
  - HEADACHE [None]
  - WOUND [None]
